FAERS Safety Report 11491511 (Version 2)
Quarter: 2015Q3

REPORT INFORMATION
  Report Type: Spontaneous
  Country: US (occurrence: US)
  Receive Date: 20150910
  Receipt Date: 20150925
  Transmission Date: 20151125
  Serious: Yes (Hospitalization, Other)
  Sender: FDA-Public Use
  Company Number: US-UNITED THERAPEUTICS-UNT-2015-010280

PATIENT
  Sex: Female

DRUGS (3)
  1. REMODULIN [Suspect]
     Active Substance: TREPROSTINIL
     Dosage: 0.044 ?G/KG, CONTINUING
     Route: 041
  2. REMODULIN [Suspect]
     Active Substance: TREPROSTINIL
     Dosage: 0.045 ?G/KG, CONTINUING
     Route: 041
  3. REMODULIN [Suspect]
     Active Substance: TREPROSTINIL
     Indication: PULMONARY ARTERIAL HYPERTENSION
     Dosage: 0.042 ?G/KG, Q48H
     Route: 041
     Dates: start: 20141212

REACTIONS (9)
  - Injection site pain [Unknown]
  - Sepsis [Unknown]
  - Fluid retention [Unknown]
  - Localised oedema [Unknown]
  - Drug dose omission [Unknown]
  - Cardiac failure [Unknown]
  - Injection site oedema [Unknown]
  - Neck pain [Unknown]
  - Device issue [Unknown]

NARRATIVE: CASE EVENT DATE: 2015
